FAERS Safety Report 6580066-3 (Version None)
Quarter: 2010Q1

REPORT INFORMATION
  Report Type: 
  Country: None (occurrence: None)
  Receive Date: 20100212
  Receipt Date: 20100203
  Transmission Date: 20100710
  Serious: Yes (Life-Threatening)
  Sender: FDA-Public Use
  Company Number: JP-MERCK-0912USA02156

PATIENT
  Age: 79 Year
  Sex: Male
  Weight: 57 kg

DRUGS (13)
  1. PEPCID RPD [Suspect]
     Indication: GASTRITIS
     Route: 048
     Dates: end: 20091203
  2. PEPCID RPD [Suspect]
     Route: 048
     Dates: start: 20091204, end: 20091207
  3. CONIEL [Concomitant]
     Indication: HYPERTENSION
     Route: 065
     Dates: start: 20091204, end: 20091208
  4. LASIX [Concomitant]
     Indication: HYPERTENSION
     Route: 065
     Dates: start: 20091204, end: 20091208
  5. NU-LOTAN [Concomitant]
     Indication: HYPERTENSION
     Route: 065
     Dates: start: 20091204, end: 20091208
  6. ALLOPURINOL [Concomitant]
     Indication: HYPERURICAEMIA
     Route: 065
     Dates: start: 20091204
  7. BFLUID [Concomitant]
     Indication: FLUID REPLACEMENT
     Route: 065
     Dates: start: 20091203, end: 20091203
  8. UNASYN (AMPICILLIN SODIUM (+) SULBACTAM SODIUM) [Concomitant]
     Indication: PNEUMONIA
     Route: 065
     Dates: start: 20091202, end: 20091207
  9. SOLDEM 3A [Concomitant]
     Indication: FLUID REPLACEMENT
     Route: 065
     Dates: start: 20091204, end: 20091206
  10. POTACOL R [Concomitant]
     Indication: FLUID REPLACEMENT
     Route: 065
     Dates: start: 20091203, end: 20091203
  11. LACTEC [Concomitant]
     Indication: FLUID REPLACEMENT
     Route: 065
     Dates: start: 20091204, end: 20091207
  12. VITAMINS (UNSPECIFIED) [Concomitant]
     Indication: VITAMIN SUPPLEMENTATION
     Route: 065
     Dates: start: 20091203, end: 20091203
  13. HUMULIN R [Concomitant]
     Indication: TYPE 2 DIABETES MELLITUS
     Route: 065
     Dates: start: 20091207, end: 20091209

REACTIONS (5)
  - ELECTROCARDIOGRAM QT PROLONGED [None]
  - LOSS OF CONSCIOUSNESS [None]
  - TORSADE DE POINTES [None]
  - VENTRICULAR FIBRILLATION [None]
  - VENTRICULAR TACHYCARDIA [None]
